FAERS Safety Report 5376291-X (Version None)
Quarter: 2007Q3

REPORT INFORMATION
  Report Type: 
  Country: None (occurrence: None)
  Receive Date: 20070702
  Receipt Date: 20070626
  Transmission Date: 20080115
  Serious: Yes (Other)
  Sender: FDA-Public Use
  Company Number: JP-AVENTIS-200613562JP

PATIENT
  Sex: Male
  Weight: 80 kg

DRUGS (4)
  1. LANTUS [Suspect]
     Indication: TYPE 1 DIABETES MELLITUS
     Dosage: DOSE: 25 UNITS
     Route: 058
  2. LANTUS [Suspect]
     Dosage: DOSE: 26 UNITS
     Route: 058
  3. OPTICLIK (INSULIN INJECTION PEN) [Suspect]
  4. HUMALOG [Concomitant]
     Indication: DIABETES MELLITUS
     Dosage: DOSE: 25 UNITS

REACTIONS (8)
  - BLOOD GLUCOSE INCREASED [None]
  - DEPRESSED LEVEL OF CONSCIOUSNESS [None]
  - DEVICE MALFUNCTION [None]
  - FALL [None]
  - HYPOGLYCAEMIA [None]
  - INCORRECT DOSE ADMINISTERED [None]
  - INJECTION SITE HAEMORRHAGE [None]
  - PHARMACEUTICAL PRODUCT COMPLAINT [None]
